FAERS Safety Report 5479751-6 (Version None)
Quarter: 2007Q4

REPORT INFORMATION
  Report Type: 
  Country: None (occurrence: None)
  Receive Date: 20071008
  Receipt Date: 20070927
  Transmission Date: 20080405
  Serious: Yes (Hospitalization, Other)
  Sender: FDA-Public Use
  Company Number: US-SHR-US-2006-028789

PATIENT
  Age: 41 Year
  Sex: Female
  Weight: 53.515 kg

DRUGS (6)
  1. BETASERON [Suspect]
     Indication: RELAPSING-REMITTING MULTIPLE SCLEROSIS
     Dosage: 8 MIU, EVERY 2D
     Route: 058
     Dates: start: 19950515
  2. LEVOTHYROXINE SODIUM [Concomitant]
     Indication: HYPOTHYROIDISM
     Dosage: .1 MG, 1X/DAY
     Route: 048
     Dates: start: 19910501
  3. TUMS [Concomitant]
     Indication: NAUSEA
     Dosage: 1 TAB(S), 1X/DAY
     Route: 048
  4. TYLENOL (CAPLET) [Concomitant]
     Dosage: UNK, AS REQ'D
     Route: 048
  5. ALBUTEROL [Concomitant]
     Indication: ASTHMA
     Dosage: INHALED
     Route: 055
  6. PRILOSEC OTC [Concomitant]
     Indication: ULCER
     Dosage: 1 TAB(S), 1X/DAY
     Route: 048

REACTIONS (10)
  - ANAEMIA [None]
  - BLOOD POTASSIUM DECREASED [None]
  - FATIGUE [None]
  - GASTRIC ULCER [None]
  - INFLUENZA [None]
  - INTRAOCULAR PRESSURE INCREASED [None]
  - MULTIPLE SYSTEM ATROPHY [None]
  - PERNICIOUS ANAEMIA [None]
  - RESPIRATORY TRACT INFECTION [None]
  - RETINAL DETACHMENT [None]
